FAERS Safety Report 4728083-X (Version None)
Quarter: 2005Q3

REPORT INFORMATION
  Report Type: 
  Country: None (occurrence: None)
  Receive Date: 20050729
  Receipt Date: 20030507
  Transmission Date: 20060218
  Serious: Yes (Hospitalization)
  Sender: FDA-Public Use
  Company Number: PHBS2003US04724

PATIENT
  Age: 22 Year
  Sex: Female

DRUGS (11)
  1. CLOZAPINE [Suspect]
     Indication: SCHIZOPHRENIA
     Dosage: 25 MG/D
     Route: 065
  2. CLOZAPINE [Suspect]
     Dosage: 125 MG/D
     Route: 065
  3. CLOZAPINE [Suspect]
     Dosage: 150 MG/D
     Route: 065
  4. LORAZEPAM [Concomitant]
     Dosage: 3 MG/D
     Route: 065
  5. RISPERIDONE (NGX) [Suspect]
     Indication: SCHIZOPHRENIA
     Dosage: 5 MG/D
     Route: 065
  6. RISPERIDONE (NGX) [Suspect]
     Dosage: 2 MG/D
     Route: 065
  7. RISPERIDONE (NGX) [Suspect]
     Dosage: 5 MG/D
     Route: 065
  8. BENZTROPEINE [Concomitant]
     Dosage: 2 MG/D
     Route: 065
  9. BENZTROPEINE [Concomitant]
     Dosage: 1 MG/D
     Route: 065
  10. MULTI-VITAMINS [Concomitant]
     Route: 065
  11. CALCIUM GLUCONATE [Concomitant]
     Route: 065

REACTIONS (10)
  - BREAST TENDERNESS [None]
  - CHEST DISCOMFORT [None]
  - DIABETIC KETOACIDOSIS [None]
  - DYSPNOEA [None]
  - HYPERVENTILATION [None]
  - LETHARGY [None]
  - MENSTRUAL DISORDER [None]
  - NAUSEA [None]
  - VOMITING [None]
  - WEIGHT DECREASED [None]
